FAERS Safety Report 9498809 (Version 1)
Quarter: 2013Q3

REPORT INFORMATION
  Report Type: Spontaneous
  Country: US (occurrence: None)
  Receive Date: 20130830
  Receipt Date: 20130830
  Transmission Date: 20140515
  Serious: Yes (Life-Threatening, Hospitalization)
  Sender: FDA-Public Use
  Company Number: 2013AP007600

PATIENT
  Age: 18 Day
  Sex: Male
  Weight: 4 kg

DRUGS (4)
  1. FLECAINIDE [Suspect]
     Indication: SUPRAVENTRICULAR TACHYCARDIA
     Route: 048
  2. ATROPINE [Concomitant]
  3. ADENOSINE [Concomitant]
  4. ESMOLOL [Concomitant]

REACTIONS (6)
  - Lethargy [None]
  - Cardiac arrest neonatal [None]
  - Tachycardia [None]
  - Toxicity to various agents [None]
  - Accidental overdose [None]
  - Product label issue [None]
